FAERS Safety Report 7068489-X (Version None)
Quarter: 2010Q4

REPORT INFORMATION
  Report Type: 
  Country: None (occurrence: None)
  Receive Date: 20101028
  Receipt Date: 20101020
  Transmission Date: 20110411
  Serious: Yes (Hospitalization)
  Sender: FDA-Public Use
  Company Number: BR-ABBOTT-10P-020-0679675-00

PATIENT
  Sex: Male
  Weight: 22.9 kg

DRUGS (4)
  1. AKINETON [Suspect]
     Indication: TREMOR
     Route: 048
  2. AKINETON [Suspect]
     Indication: MUSCLE RIGIDITY
  3. AKINETON [Suspect]
     Indication: MUSCLE SPASMS
  4. RIVOTRIL [Concomitant]
     Indication: ANXIOLYTIC THERAPY
     Route: 048

REACTIONS (9)
  - ABDOMINAL PAIN UPPER [None]
  - CRYING [None]
  - DRUG INEFFECTIVE [None]
  - FAECES HARD [None]
  - HYPERHIDROSIS [None]
  - MUSCULOSKELETAL STIFFNESS [None]
  - PAIN IN EXTREMITY [None]
  - SOMNOLENCE [None]
  - URINARY TRACT INFECTION [None]
